FAERS Safety Report 10300449 (Version 2)
Quarter: 2014Q3

REPORT INFORMATION
  Report Type: Report from Study
  Country: MX (occurrence: MX)
  Receive Date: 20140713
  Receipt Date: 20140713
  Transmission Date: 20150326
  Serious: Yes (Hospitalization, Other)
  Sender: FDA-Public Use
  Company Number: PHHY2013MX063884

PATIENT
  Age: 87 Year
  Sex: Female

DRUGS (8)
  1. DIOVAN [Suspect]
     Active Substance: VALSARTAN
     Indication: HYPERTENSION
     Dosage: UNK UKN, UNK
     Dates: start: 201106
  2. PRADAXAR [Concomitant]
     Active Substance: DABIGATRAN ETEXILATE
     Indication: COAGULOPATHY
     Dosage: 2 DF, DAILY
     Dates: start: 201206
  3. TRUSOPT [Concomitant]
     Active Substance: DORZOLAMIDE HYDROCHLORIDE
     Indication: INTRAOCULAR PRESSURE TEST ABNORMAL
     Dosage: 2 DF, DAILY
     Route: 047
     Dates: start: 201301
  4. ROSUVASTATINE [Concomitant]
     Active Substance: ROSUVASTATIN
     Indication: BLOOD CHOLESTEROL ABNORMAL
     Dosage: 2 DF, DAILY
     Dates: start: 201206
  5. PRADAXAR [Concomitant]
     Active Substance: DABIGATRAN ETEXILATE
     Dosage: UNK UKN, UNK
  6. ASPIRINE PROTECT [Concomitant]
     Active Substance: ASPIRIN
     Indication: PLATELET DISORDER
     Dosage: 1 DF, DAILY
     Dates: start: 2010
  7. NIMOTOP [Concomitant]
     Active Substance: NIMODIPINE
     Indication: CEREBRAL DISORDER
     Dosage: 2 DF,DAILY
     Dates: start: 201206
  8. CORDARONE [Concomitant]
     Active Substance: AMIODARONE HYDROCHLORIDE
     Indication: CARDIAC DISORDER
     Dosage: 0.5 DF DAILY
     Dates: start: 201204

REACTIONS (13)
  - Somnolence [Unknown]
  - Viral infection [Unknown]
  - Pyrexia [Unknown]
  - Bacterial disease carrier [Unknown]
  - Carotid artery occlusion [Not Recovered/Not Resolved]
  - Speech disorder [Recovering/Resolving]
  - Urinary tract infection [Not Recovered/Not Resolved]
  - Feeling abnormal [Unknown]
  - Blood cholesterol increased [Not Recovered/Not Resolved]
  - Hemiplegia [Recovering/Resolving]
  - Dengue fever [Recovered/Resolved]
  - Fatigue [Unknown]
  - Cerebrovascular accident [Unknown]

NARRATIVE: CASE EVENT DATE: 201207
